FAERS Safety Report 15540085 (Version 6)
Quarter: 2019Q1

REPORT INFORMATION
  Report Type: Spontaneous
  Country: JP (occurrence: JP)
  Receive Date: 20181023
  Receipt Date: 20190212
  Transmission Date: 20190417
  Serious: Yes (Other)
  Sender: FDA-Public Use
  Company Number: JP-AMGEN-JPNSP2018147709

PATIENT
  Age: 86 Year
  Sex: Male

DRUGS (39)
  1. CALONAL [Concomitant]
     Active Substance: ACETAMINOPHEN
     Dosage: 400 MG, PRN, WHEN HAVING PAIN OR FEVER
     Route: 048
  2. CILNIDIPINE [Concomitant]
     Active Substance: CILNIDIPINE
     Dosage: 10 MG, QD, AFTER BREAKFAST
     Route: 048
     Dates: end: 20180727
  3. TELMISARTAN. [Concomitant]
     Active Substance: TELMISARTAN
     Dosage: 80 MG
     Route: 048
     Dates: start: 20180803, end: 20181113
  4. FEBURIC [Concomitant]
     Active Substance: FEBUXOSTAT
     Dosage: 20 MG
     Route: 048
     Dates: end: 20180727
  5. METHYCOBAL [Concomitant]
     Active Substance: METHYLCOBALAMIN
     Dosage: 500 UG, TID, AFTER BREAKFAST, LUNCH AND DINNER
     Route: 048
     Dates: end: 20180727
  6. METHYCOBAL [Concomitant]
     Active Substance: METHYLCOBALAMIN
     Dosage: 500 UG, TID, AFTER BREAKFAST, LUNCH AND DINNER
     Route: 048
     Dates: start: 20180803, end: 20181113
  7. WARFARIN                           /00014803/ [Concomitant]
     Active Substance: WARFARIN
     Dosage: 3.5 MG, QD, AFTER DINNER
     Route: 048
     Dates: start: 20180831, end: 20181108
  8. CILNIDIPINE [Concomitant]
     Active Substance: CILNIDIPINE
     Dosage: 10 MG, QD, AFTER DINNER
     Route: 048
     Dates: start: 20180725, end: 20180727
  9. CILNIDIPINE [Concomitant]
     Active Substance: CILNIDIPINE
     Dosage: 10 MG, BID, AFTER BREAKFAST AND DINNER
     Route: 048
     Dates: start: 20180803, end: 20181113
  10. CILNIDIPINE [Concomitant]
     Active Substance: CILNIDIPINE
     Dosage: 10 MG, BID, AFTER BREAKFAST AND DINNER
     Route: 048
     Dates: start: 20181116, end: 20181206
  11. TRAZENTA [Concomitant]
     Active Substance: LINAGLIPTIN
     Dosage: 5 MG
     Route: 048
     Dates: start: 20181116, end: 20181206
  12. HERBESSER [Concomitant]
     Active Substance: DILTIAZEM HYDROCHLORIDE
     Dosage: 100 MG, QD,AFTER BREAKFAST
     Route: 048
     Dates: start: 20181116, end: 20181206
  13. RABEPRAZOLE NA [Concomitant]
     Active Substance: RABEPRAZOLE SODIUM
     Dosage: 10 MG, QD, AFTER BREAKFAST
     Route: 048
     Dates: start: 20181116, end: 20181206
  14. WARFARIN                           /00014803/ [Concomitant]
     Active Substance: WARFARIN
     Dosage: 3.5 MG, QD, AFTER DINNER
     Route: 048
     Dates: start: 20180803, end: 20180830
  15. NESP [Suspect]
     Active Substance: DARBEPOETIN ALFA
     Indication: PRODUCT USED FOR UNKNOWN INDICATION
     Dosage: UNK
     Route: 065
  16. TRAZENTA [Concomitant]
     Active Substance: LINAGLIPTIN
     Dosage: 5 MG
     Route: 048
     Dates: end: 20180727
  17. FEBURIC [Concomitant]
     Active Substance: FEBUXOSTAT
     Dosage: 20 MG
     Route: 048
     Dates: start: 20181116, end: 20181206
  18. WARFARIN                           /00014803/ [Concomitant]
     Active Substance: WARFARIN
     Dosage: 3.5 MG, QD, AFTER DINNER
     Route: 048
     Dates: end: 20180727
  19. SULTAMUGIN [Concomitant]
     Dosage: 2 G
     Route: 042
     Dates: start: 20180718, end: 20180725
  20. MIRCERA [Concomitant]
     Active Substance: METHOXY POLYETHYLENE GLYCOL-EPOETIN BETA
     Dosage: 150 UG
     Route: 058
     Dates: start: 20181025, end: 20181025
  21. TRAZENTA [Concomitant]
     Active Substance: LINAGLIPTIN
     Dosage: 5 MG
     Route: 048
     Dates: start: 20180803, end: 20181113
  22. FEBURIC [Concomitant]
     Active Substance: FEBUXOSTAT
     Dosage: 10 MG
     Route: 048
     Dates: start: 20180803, end: 20181113
  23. METHYCOBAL [Concomitant]
     Active Substance: METHYLCOBALAMIN
     Dosage: 500 UG, TID, AFTER BREAKFAST, LUNCH AND DINNER
     Route: 048
     Dates: start: 20181116, end: 20181206
  24. RABEPRAZOLE NA [Concomitant]
     Active Substance: RABEPRAZOLE SODIUM
     Dosage: 10 MG, QD, AFTER BREAKFAST
     Route: 048
     Dates: start: 20180803, end: 20181113
  25. WARFARIN                           /00014803/ [Concomitant]
     Active Substance: WARFARIN
     Dosage: 3.5 MG, QD, AFTER DINNER
     Route: 048
     Dates: start: 20181106, end: 20181113
  26. SULTAMUGIN [Concomitant]
     Dosage: 1 G
     Route: 042
     Dates: start: 20180726, end: 20180726
  27. MIRCERA [Concomitant]
     Active Substance: METHOXY POLYETHYLENE GLYCOL-EPOETIN BETA
     Dosage: 150 UG
     Route: 058
     Dates: start: 20181106, end: 20181106
  28. TELMISARTAN. [Concomitant]
     Active Substance: TELMISARTAN
     Dosage: 80 MG
     Route: 048
     Dates: start: 20181116, end: 20181206
  29. SOLACET F [Concomitant]
     Dosage: 500 ML
     Route: 042
     Dates: end: 20180723
  30. BIKEN HA [Concomitant]
     Active Substance: INFLUENZA VIRUS VACCINE
     Dosage: 0.5 ML
     Route: 058
     Dates: start: 20181116, end: 20181116
  31. RABEPRAZOLE NA [Concomitant]
     Active Substance: RABEPRAZOLE SODIUM
     Dosage: 10 MG, QD, AFTER BREAKFAST
     Route: 048
     Dates: end: 20180727
  32. ISOTONIC SODIUM CHLORIDE SOLUTION [Concomitant]
     Active Substance: SODIUM CHLORIDE
     Dosage: 200 ML
     Route: 042
     Dates: start: 20180718, end: 20180725
  33. TELMISARTAN. [Concomitant]
     Active Substance: TELMISARTAN
     Dosage: 80 MG
     Route: 048
     Dates: end: 20170727
  34. HERBESSER [Concomitant]
     Active Substance: DILTIAZEM HYDROCHLORIDE
     Dosage: 100 MG, QD,AFTER BREAKFAST
     Route: 048
     Dates: end: 20180727
  35. HERBESSER [Concomitant]
     Active Substance: DILTIAZEM HYDROCHLORIDE
     Dosage: 100 MG, QD,AFTER BREAKFAST
     Route: 048
     Dates: start: 20180803, end: 20181113
  36. WARFARIN                           /00014803/ [Concomitant]
     Active Substance: WARFARIN
     Dosage: 3.5 MG, QD, AFTER DINNER
     Route: 048
     Dates: end: 20180804
  37. WARFARIN                           /00014803/ [Concomitant]
     Active Substance: WARFARIN
     Dosage: 3.5 MG, QD, AFTER DINNER
     Route: 048
     Dates: start: 20180831, end: 20180913
  38. WARFARIN                           /00014803/ [Concomitant]
     Active Substance: WARFARIN
     Dosage: 3.5 MG, QD, AFTER DINNER
     Route: 048
     Dates: start: 20181116, end: 20181206
  39. ISOTONIC SODIUM CHLORIDE SOLUTION [Concomitant]
     Active Substance: SODIUM CHLORIDE
     Dosage: 100 ML
     Route: 042
     Dates: start: 20180726, end: 20180726

REACTIONS (1)
  - Aplasia pure red cell [Not Recovered/Not Resolved]

NARRATIVE: CASE EVENT DATE: 20181116
